FAERS Safety Report 14147480 (Version 2)
Quarter: 2017Q4

REPORT INFORMATION
  Report Type: Spontaneous
  Country: US (occurrence: US)
  Receive Date: 20171031
  Receipt Date: 20171208
  Transmission Date: 20180321
  Serious: Yes (Disabling, Other)
  Sender: FDA-Public Use
  Company Number: US-PFIZER INC-2017461875

PATIENT
  Age: 33 Year
  Sex: Female
  Weight: 99.79 kg

DRUGS (2)
  1. VENLAFAXINE HCL [Suspect]
     Active Substance: VENLAFAXINE HYDROCHLORIDE
     Indication: BIPOLAR I DISORDER
     Dosage: 225 MG, DAILY, (75 MG, THREE CAPSULES)
     Route: 048
  2. VENLAFAXINE HCL [Suspect]
     Active Substance: VENLAFAXINE HYDROCHLORIDE
     Indication: POST-TRAUMATIC STRESS DISORDER
     Dosage: 225 MG, DAILY, (75 MG, THREE CAPSULES)
     Route: 048
     Dates: start: 2015

REACTIONS (8)
  - Weight increased [Not Recovered/Not Resolved]
  - Withdrawal syndrome [Unknown]
  - Paraesthesia [Not Recovered/Not Resolved]
  - Feeling abnormal [Not Recovered/Not Resolved]
  - Feeling cold [Not Recovered/Not Resolved]
  - Hypoaesthesia [Not Recovered/Not Resolved]
  - Alopecia [Unknown]
  - Malaise [Unknown]

NARRATIVE: CASE EVENT DATE: 2015
